FAERS Safety Report 4693417-1 (Version None)
Quarter: 2005Q2

REPORT INFORMATION
  Report Type: 
  Country: None (occurrence: None)
  Receive Date: 20050617
  Receipt Date: 20050609
  Transmission Date: 20051028
  Serious: Yes (Hospitalization)
  Sender: FDA-Public Use
  Company Number: PHBS2005IT08402

PATIENT
  Age: 77 Year
  Sex: Male

DRUGS (6)
  1. ZOMETA [Suspect]
     Indication: METASTASES TO BONE
     Dosage: 1 DF, QMO
     Route: 042
     Dates: start: 20030801, end: 20050501
  2. ESTRACYT [Concomitant]
     Dosage: 10 MG/KG/D
     Route: 065
     Dates: start: 20031230, end: 20040828
  3. VELBE [Concomitant]
     Dosage: 4 MG/D
     Route: 042
  4. VEPESID [Concomitant]
     Dosage: 1 DF, QD
     Route: 048
  5. TAXOTERE [Concomitant]
     Route: 065
     Dates: start: 20040920, end: 20041008
  6. ADRIBLASTINE [Concomitant]
     Route: 065
     Dates: start: 20050310, end: 20050530

REACTIONS (4)
  - ASEPTIC NECROSIS BONE [None]
  - COMPUTERISED TOMOGRAM ABNORMAL [None]
  - OSTEONECROSIS [None]
  - SURGERY [None]
